FAERS Safety Report 18081485 (Version 2)
Quarter: 2020Q3

REPORT INFORMATION
  Report Type: Spontaneous
  Country: DE (occurrence: DE)
  Receive Date: 20200728
  Receipt Date: 20200821
  Transmission Date: 20201103
  Serious: Yes (Death, Other)
  Sender: FDA-Public Use
  Company Number: DE-ASTRAZENECA-2020SE93334

PATIENT
  Age: 771 Month
  Sex: Female
  Weight: 47 kg

DRUGS (1)
  1. LYNPARZA [Suspect]
     Active Substance: OLAPARIB
     Dosage: 400.0MG UNKNOWN
     Route: 048
     Dates: start: 20190101, end: 20200722

REACTIONS (4)
  - Anaemia [Unknown]
  - Fallopian tube cancer [Fatal]
  - Malignant neoplasm progression [Unknown]
  - Ovarian cancer metastatic [Unknown]

NARRATIVE: CASE EVENT DATE: 202004
